FAERS Safety Report 11893000 (Version 1)
Quarter: 2016Q1

REPORT INFORMATION
  Report Type: Other
  Country: US (occurrence: US)
  Receive Date: 20160106
  Receipt Date: 20160106
  Transmission Date: 20160526
  Serious: Yes (Hospitalization, Other)
  Sender: FDA-Public Use
  Company Number: US-SHIRE-US201517000

PATIENT
  Age: 78 Year
  Sex: Female

DRUGS (1)
  1. PENTASA [Suspect]
     Active Substance: MESALAMINE
     Indication: PRODUCT USED FOR UNKNOWN INDICATION
     Dosage: UNK UNK, UNKNOWN
     Route: 048
     Dates: start: 2013

REACTIONS (4)
  - Diarrhoea [Recovered/Resolved]
  - Circulatory collapse [Unknown]
  - Dehydration [Unknown]
  - Underdose [Unknown]

NARRATIVE: CASE EVENT DATE: 20151223
